FAERS Safety Report 5655045-0 (Version None)
Quarter: 2008Q1

REPORT INFORMATION
  Report Type: 
  Country: None (occurrence: None)
  Receive Date: 20080307
  Receipt Date: 20071105
  Transmission Date: 20080703
  Serious: No
  Sender: FDA-Public Use
  Company Number: A0691466A

PATIENT
  Age: 61 Year
  Sex: Female

DRUGS (8)
  1. REQUIP [Suspect]
     Indication: RESTLESS LEGS SYNDROME
     Dosage: 1MG AT NIGHT
     Route: 048
  2. ROZEREM [Concomitant]
  3. TEMAZEPAM [Concomitant]
  4. PREVACID [Concomitant]
  5. CYMBALTA [Concomitant]
  6. CRESTOR [Concomitant]
  7. BENICAR [Concomitant]
  8. UNSPECIFIED MEDICATION [Concomitant]

REACTIONS (1)
  - ALOPECIA [None]
